FAERS Safety Report 16688699 (Version 1)
Quarter: 2019Q3

REPORT INFORMATION
  Report Type: Spontaneous
  Country: PL (occurrence: PL)
  Receive Date: 20190809
  Receipt Date: 20190809
  Transmission Date: 20191004
  Serious: Yes (Life-Threatening)
  Sender: FDA-Public Use
  Company Number: PL-PFIZER INC-2019336434

PATIENT
  Age: 71 Year
  Sex: Male
  Weight: 61 kg

DRUGS (3)
  1. VINORELBINE [Suspect]
     Active Substance: VINORELBINE TARTRATE
     Indication: LUNG NEOPLASM MALIGNANT
     Dosage: 43.25 MG, UNK
     Route: 042
     Dates: start: 20190712, end: 20190712
  2. CARBOPLATIN. [Suspect]
     Active Substance: CARBOPLATIN
     Indication: LUNG NEOPLASM MALIGNANT
     Dosage: 393.15 MG, UNK
     Route: 042
     Dates: start: 20190712, end: 20190712
  3. ZARZIO [Concomitant]
     Active Substance: FILGRASTIM
     Dosage: UNK (10 PFS)

REACTIONS (2)
  - Neutropenia [Unknown]
  - Infection [Unknown]

NARRATIVE: CASE EVENT DATE: 20190718
